FAERS Safety Report 4845941-6 (Version None)
Quarter: 2005Q4

REPORT INFORMATION
  Report Type: 
  Country: None (occurrence: None)
  Receive Date: 20051129
  Receipt Date: 20050531
  Transmission Date: 20060501
  Serious: Yes (Other)
  Sender: FDA-Public Use
  Company Number: 2005BH000073

PATIENT
  Age: 65 Year
  Sex: Female

DRUGS (2)
  1. IMMUNE GLOBULIN INTRAVENOUS (HUMAN) [Suspect]
     Indication: GUILLAIN-BARRE SYNDROME
     Dosage: 400 MG/KG; EVERY DAY
  2. FLUOROURACIL [Concomitant]

REACTIONS (6)
  - BLINDNESS CORTICAL [None]
  - BLOOD OSMOLARITY DECREASED [None]
  - BLOOD SODIUM DECREASED [None]
  - CEREBROVASCULAR ACCIDENT [None]
  - URINE OSMOLARITY DECREASED [None]
  - URINE OUTPUT INCREASED [None]
